FAERS Safety Report 15291409 (Version 1)
Quarter: 2018Q3

REPORT INFORMATION
  Report Type: Spontaneous
  Country: US (occurrence: US)
  Receive Date: 20180805
  Receipt Date: 20180805
  Transmission Date: 20181010
  Serious: No
  Sender: FDA-Public Use
  Company Number: None

PATIENT
  Age: 27 Year
  Sex: Female
  Weight: 58.5 kg

DRUGS (1)
  1. DUPIXENT [Suspect]
     Active Substance: DUPILUMAB

REACTIONS (5)
  - Eye swelling [None]
  - Eye pruritus [None]
  - Ocular hyperaemia [None]
  - Lip swelling [None]
  - Oral herpes [None]

NARRATIVE: CASE EVENT DATE: 20180308
